FAERS Safety Report 8826302 (Version 2)
Quarter: 2012Q4

REPORT INFORMATION
  Report Type: 
  Country: JP (occurrence: JP)
  Receive Date: 20121005
  Receipt Date: 20121015
  Transmission Date: 20130627
  Serious: No
  Sender: FDA-Public Use
  Company Number: JP-ROCHE-1141192

PATIENT
  Age: 77 Year
  Sex: Female

DRUGS (3)
  1. ACTEMRA [Suspect]
     Indication: RHEUMATOID ARTHRITIS
     Route: 041
     Dates: end: 20120919
  2. MEVALOTIN [Concomitant]
  3. ACTONEL [Concomitant]

REACTIONS (2)
  - Palpitations [Recovered/Resolved]
  - Liver function test abnormal [Recovered/Resolved]
